FAERS Safety Report 16478305 (Version 2)
Quarter: 2019Q3

REPORT INFORMATION
  Report Type: Report from Study
  Country: US (occurrence: US)
  Receive Date: 20190626
  Receipt Date: 20190802
  Transmission Date: 20191004
  Serious: Yes (Hospitalization, Other)
  Sender: FDA-Public Use
  Company Number: US-PFIZER INC-2019186072

PATIENT
  Age: 65 Year
  Sex: Male

DRUGS (3)
  1. SUTENT [Suspect]
     Active Substance: SUNITINIB MALATE
     Indication: RENAL CELL CARCINOMA
     Dosage: 50 MG, CYCLIC(DAILY 4 WEEKS ON, 2 WEEKS OFF)/[DAILY/28 DAYS ON, 14 DAYS OFF]
     Route: 048
     Dates: start: 20190415
  2. SUTENT [Suspect]
     Active Substance: SUNITINIB MALATE
     Dosage: 50 MG, CYCLIC (DAILY 4 WEEKS ON, 2 WEEKS OFF)
     Route: 048
     Dates: start: 20190527
  3. SUTENT [Suspect]
     Active Substance: SUNITINIB MALATE
     Dosage: 37.5 MG, CYCLIC (DAILY, 4 WEEKS ON, 2 WEEKS OFF)
     Route: 048
     Dates: start: 201906

REACTIONS (12)
  - Respiratory failure [Unknown]
  - Hyperglycaemia [Unknown]
  - Deep vein thrombosis [Unknown]
  - Diarrhoea [Recovering/Resolving]
  - Abdominal pain upper [Unknown]
  - Infection [Unknown]
  - Muscular weakness [Recovering/Resolving]
  - Fatigue [Recovering/Resolving]
  - Hypoglycaemia [Recovered/Resolved]
  - Peripheral swelling [Recovering/Resolving]
  - Gastrooesophageal reflux disease [Unknown]
  - Anaemia [Unknown]

NARRATIVE: CASE EVENT DATE: 201906
